FAERS Safety Report 4390464-4 (Version None)
Quarter: 2004Q3

REPORT INFORMATION
  Report Type: 
  Country: None (occurrence: None)
  Receive Date: 20040701
  Receipt Date: 20040701
  Transmission Date: 20050211
  Serious: No
  Sender: FDA-Public Use
  Company Number: None

PATIENT
  Sex: Male
  Weight: 62 kg

DRUGS (2)
  1. PACLITAXEL [Suspect]
     Indication: CARCINOMA
     Dosage: 173 MG Q MONTH IV
     Route: 042
     Dates: start: 20040413, end: 20040413
  2. PACLITAXEL [Suspect]
     Indication: CHEMOTHERAPY
     Dosage: 173 MG Q MONTH IV
     Route: 042
     Dates: start: 20040413, end: 20040413

REACTIONS (3)
  - CHEST PAIN [None]
  - FLUSHING [None]
  - INFUSION RELATED REACTION [None]
